FAERS Safety Report 7853989-2 (Version None)
Quarter: 2011Q4

REPORT INFORMATION
  Report Type: 
  Country: None (occurrence: None)
  Receive Date: 20111026
  Receipt Date: 20111024
  Transmission Date: 20120403
  Serious: No
  Sender: FDA-Public Use
  Company Number: US-PFIZER INC-2011257991

PATIENT
  Sex: Female

DRUGS (1)
  1. ADVIL MIGRAINE LIQUI-GELS [Suspect]
     Indication: HEADACHE
     Dosage: 200 MG, UNK

REACTIONS (1)
  - DRUG INEFFECTIVE [None]
